FAERS Safety Report 6686781-5 (Version None)
Quarter: 2010Q2

REPORT INFORMATION
  Report Type: 
  Country: None (occurrence: None)
  Receive Date: 20100414
  Receipt Date: 20100401
  Transmission Date: 20101027
  Serious: Yes (Other)
  Sender: FDA-Public Use
  Company Number: 2010VX000532

PATIENT
  Age: 45 Year
  Sex: Female

DRUGS (1)
  1. FLUOROURACIL           5% [Suspect]
     Indication: VAGINAL CANCER STAGE 0

REACTIONS (1)
  - VAGINAL CANCER [None]
